FAERS Safety Report 5620231-2 (Version None)
Quarter: 2008Q1

REPORT INFORMATION
  Report Type: 
  Country: None (occurrence: None)
  Receive Date: 20080208
  Receipt Date: 20080205
  Transmission Date: 20080703
  Serious: Yes (Hospitalization)
  Sender: FDA-Public Use
  Company Number: A0708157A

PATIENT
  Age: 71 Year
  Sex: Female
  Weight: 55.5 kg

DRUGS (10)
  1. COMPAZINE [Suspect]
     Indication: NAUSEA
     Dosage: 10MG AS REQUIRED
     Route: 048
  2. TEMOZOLOMIDE [Suspect]
     Indication: GLIOBLASTOMA MULTIFORME
     Dosage: 125MG TWICE PER DAY
     Route: 048
     Dates: start: 20070227
  3. KEPPRA [Suspect]
     Dosage: 750MG TWICE PER DAY
     Route: 048
  4. KLOR-CON [Concomitant]
  5. BACTRIM [Concomitant]
  6. DEXAMETHASONE TAB [Concomitant]
  7. ZOFRAN [Concomitant]
  8. FAMOTIDINE [Concomitant]
  9. ALEVE [Concomitant]
  10. RADIATION [Concomitant]
     Indication: GLIOBLASTOMA MULTIFORME
     Dosage: 600GY CUMULATIVE DOSE
     Dates: end: 20070409

REACTIONS (6)
  - FATIGUE [None]
  - HEMIPARESIS [None]
  - HYPOKALAEMIA [None]
  - LETHARGY [None]
  - MEMORY IMPAIRMENT [None]
  - NEUROPATHY PERIPHERAL [None]
